FAERS Safety Report 4280618-X (Version None)
Quarter: 2004Q1

REPORT INFORMATION
  Report Type: 
  Country: None (occurrence: None)
  Receive Date: 20040127
  Receipt Date: 20040114
  Transmission Date: 20041129
  Serious: Yes (Hospitalization)
  Sender: FDA-Public Use
  Company Number: 2004002997

PATIENT
  Age: 82 Year
  Sex: Female

DRUGS (4)
  1. GLUCOTROL XL [Suspect]
     Indication: DIABETES MELLITUS NON-INSULIN-DEPENDENT
     Dosage: 10 MG (DAILY), ORAL
     Route: 048
  2. GATIFLOXACIN (GATIFLOXACIN) [Suspect]
     Indication: PNEUMONIA
     Dosage: 200 MG (DAILY), ORAL
     Route: 048
  3. METFORMIN HCL [Suspect]
     Indication: DIABETES MELLITUS NON-INSULIN-DEPENDENT
     Dosage: 200 MG (BID), ORAL
     Route: 048
  4. INSULIN [Suspect]
     Indication: DIABETES MELLITUS NON-INSULIN-DEPENDENT
     Dosage: SUBCUTANEOUS
     Route: 058

REACTIONS (4)
  - DRUG INTERACTION [None]
  - FEELING ABNORMAL [None]
  - HYPERGLYCAEMIA [None]
  - PNEUMONIA [None]
